FAERS Safety Report 18987528 (Version 1)
Quarter: 2021Q1

REPORT INFORMATION
  Report Type: Spontaneous
  Country: US (occurrence: US)
  Receive Date: 20210309
  Receipt Date: 20210309
  Transmission Date: 20210420
  Serious: No
  Sender: FDA-Public Use
  Company Number: US-TEVA-2021-US-1888923

PATIENT
  Age: 86 Year
  Sex: Female
  Weight: 76.64 kg

DRUGS (3)
  1. CORICIDIN (ACETYLSALICYLIC ACID\CAFFEINE\CHLORPHENAMINE MALEATE) [Suspect]
     Active Substance: ASPIRIN\CAFFEINE\CHLORPHENIRAMINE MALEATE
     Indication: NASOPHARYNGITIS
     Route: 048
     Dates: start: 20210222, end: 20210222
  2. FEXOFENADINE [Suspect]
     Active Substance: FEXOFENADINE HYDROCHLORIDE
     Indication: HYPERSENSITIVITY
     Dosage: DOSE: 180 MG, QD, PRN
     Route: 048
     Dates: start: 202101, end: 202102
  3. CORICIDIN (ACETYLSALICYLIC ACID\CAFFEINE\CHLORPHENAMINE MALEATE) [Suspect]
     Active Substance: ASPIRIN\CAFFEINE\CHLORPHENIRAMINE MALEATE
     Indication: SNEEZING

REACTIONS (9)
  - Anxiety [Recovered/Resolved]
  - Hypersensitivity [Recovered/Resolved]
  - Feeling abnormal [Recovered/Resolved]
  - Abdominal discomfort [Recovered/Resolved]
  - Dizziness [Recovered/Resolved]
  - Dysgeusia [Recovered/Resolved]
  - Swollen tongue [Recovered/Resolved]
  - Insomnia [Recovered/Resolved]
  - Product administered to patient of inappropriate age [Unknown]

NARRATIVE: CASE EVENT DATE: 202101
